FAERS Safety Report 8920711 (Version 3)
Quarter: 2013Q2

REPORT INFORMATION
  Report Type: Report from Study
  Country: JP (occurrence: JP)
  Receive Date: 20121121
  Receipt Date: 20130527
  Transmission Date: 20140414
  Serious: Yes (Hospitalization, Other)
  Sender: FDA-Public Use
  Company Number: JP-009507513-1211JPN006974

PATIENT
  Age: 53 Year
  Sex: Female
  Weight: 47 kg

DRUGS (28)
  1. PEGINTRON [Suspect]
     Indication: CHRONIC HEPATITIS C
     Dosage: 1.72 MICROGRAM PER KILOGRAM, QW
     Route: 058
     Dates: start: 20120726, end: 20120920
  2. PEGINTRON [Suspect]
     Dosage: 1.74 MICROGRAM PER KG, QW, DAILY DOSE UNKNOWN
     Route: 058
     Dates: start: 20120927
  3. PEGINTRON [Suspect]
     Dosage: 1.739 MICROGRAM PER KILOGRAM, QW
     Route: 058
  4. REBETOL [Suspect]
     Indication: CHRONIC HEPATITIS C
     Dosage: 400 MG, QD
     Route: 048
     Dates: start: 20120726, end: 20120830
  5. REBETOL [Suspect]
     Dosage: 200 MG, QD
     Route: 048
     Dates: start: 20120831, end: 20120920
  6. REBETOL [Suspect]
     Dosage: 200 MG, QD
     Route: 048
     Dates: start: 20121018, end: 20121107
  7. REBETOL [Suspect]
     Dosage: 400 MG, QD
     Route: 048
     Dates: start: 20121108
  8. TELAVIC [Suspect]
     Indication: CHRONIC HEPATITIS C
     Dosage: 1500 MG, QD
     Route: 048
     Dates: start: 20120726, end: 20120919
  9. TELAVIC [Suspect]
     Dosage: 1000 MG, QD
     Route: 048
     Dates: start: 20120920, end: 20120926
  10. ZYLORIC [Suspect]
     Indication: ADVERSE EVENT
     Dosage: 100 MG, QD
     Route: 048
     Dates: start: 20120728, end: 20120926
  11. METHYCOBAL [Concomitant]
     Indication: ANAEMIA MEGALOBLASTIC
     Dosage: 1 DF, QD
     Route: 030
     Dates: start: 20120726, end: 20120726
  12. LOXONIN [Concomitant]
     Indication: PROPHYLAXIS
     Dosage: 3 DF, QD
     Route: 048
     Dates: start: 20120727, end: 20120816
  13. MUCOSTA [Concomitant]
     Indication: PROPHYLAXIS
     Dosage: 3 DF, QD
     Route: 048
     Dates: start: 20120727, end: 20120816
  14. MUCOSTA [Concomitant]
     Dosage: 3 DF, QD
     Route: 048
     Dates: start: 20120816
  15. MUCOSTA [Concomitant]
     Dosage: 300 MG, QD
     Route: 048
  16. SANCOBA [Concomitant]
     Indication: ASTHENOPIA
     Dosage: DAILY DOSE UNKNOWN, PRN, FORMULATION EED
     Route: 031
     Dates: start: 20120728, end: 20120926
  17. VEEN F [Concomitant]
     Indication: HYPOVITAMINOSIS
     Dosage: 1 BOTTLE PER DAY, DAILY DOSE UNKNOWN
     Route: 042
     Dates: start: 20120816, end: 20120816
  18. VEEN F [Concomitant]
     Dosage: 1 BOTTLE PER DAY, DAILY DOSE UNKNOWN
     Route: 042
     Dates: start: 20120823, end: 20120827
  19. VITAMEDIN INTRAVENOUS [Concomitant]
     Indication: HYPOVITAMINOSIS
     Dosage: 1 UNK, UNK
     Route: 042
     Dates: start: 20120816, end: 20120816
  20. VITAMEDIN INTRAVENOUS [Concomitant]
     Dosage: 1 DF, QD
     Route: 042
     Dates: start: 20120823, end: 20120827
  21. ASCORBIC ACID [Concomitant]
     Indication: HYPOVITAMINOSIS
     Dosage: 1 DF, QD
     Route: 042
     Dates: start: 20120816, end: 20120816
  22. ASCORBIC ACID [Concomitant]
     Dosage: 1 DF, QD
     Route: 042
     Dates: start: 20120823, end: 20120827
  23. BFLUID [Concomitant]
     Dosage: 500 ML, ONCE
     Route: 042
     Dates: start: 20120823, end: 20120823
  24. NAIXAN [Concomitant]
     Indication: PROPHYLAXIS
     Dosage: 300 MG, QD
     Route: 048
     Dates: start: 20120816
  25. NAIXAN [Concomitant]
     Dosage: 3 DF, QD
     Route: 048
     Dates: start: 20120823
  26. TAKEPRON [Concomitant]
     Route: 048
  27. PROMAC (POLAPREZINC) [Concomitant]
     Route: 048
  28. BIO-THEE [Concomitant]
     Route: 048

REACTIONS (4)
  - Haemoglobin decreased [Recovered/Resolved]
  - Stomatitis [Recovering/Resolving]
  - Decreased appetite [Recovering/Resolving]
  - Haemoglobin decreased [Unknown]
